FAERS Safety Report 10196115 (Version 3)
Quarter: 2014Q2

REPORT INFORMATION
  Report Type: Report from Study
  Country: NO (occurrence: NO)
  Receive Date: 20140527
  Receipt Date: 20140527
  Transmission Date: 20141212
  Serious: Yes (Hospitalization, Disabling)
  Sender: FDA-Public Use
  Company Number: NO-JNJFOC-20120912849

PATIENT
  Age: 61 Year
  Sex: Male
  Weight: 104 kg

DRUGS (9)
  1. TMC435 [Suspect]
     Route: 048
  2. TMC435 [Suspect]
     Indication: HEPATITIS C
     Route: 048
     Dates: start: 20120813, end: 20121009
  3. COPEGUS [Suspect]
     Indication: HEPATITIS C
     Dosage: 3 IN MORNING AND 3 IN EVENING
     Route: 048
     Dates: start: 20120813, end: 20121009
  4. PEGINTERFERON ALFA-2A [Suspect]
     Indication: HEPATITIS C
     Route: 058
     Dates: start: 20120813
  5. ZOPICLON [Concomitant]
     Indication: SLEEP DISORDER
     Route: 048
     Dates: start: 20120813
  6. IBUPROFEN [Concomitant]
     Indication: ARTHRALGIA
     Route: 048
     Dates: start: 20120813
  7. IBUPROFEN [Concomitant]
     Indication: HEADACHE
     Route: 048
     Dates: start: 20120813
  8. PARACETAMOL [Concomitant]
     Indication: ARTHRALGIA
     Route: 048
     Dates: start: 20120814
  9. PARACETAMOL [Concomitant]
     Indication: HEADACHE
     Route: 048
     Dates: start: 20120814

REACTIONS (3)
  - Appendicitis [Recovered/Resolved]
  - Anaemia [Recovering/Resolving]
  - Syncope [Recovered/Resolved]
